FAERS Safety Report 6410096-3 (Version None)
Quarter: 2009Q4

REPORT INFORMATION
  Report Type: 
  Country: None (occurrence: None)
  Receive Date: 20091022
  Receipt Date: 20090921
  Transmission Date: 20100525
  Serious: No
  Sender: FDA-Public Use
  Company Number: US-BAYER-200934009NA

PATIENT
  Sex: Female

DRUGS (2)
  1. MIRENA [Suspect]
     Indication: CONTRACEPTION
     Dosage: CONTINUOUS
     Route: 015
     Dates: start: 20090817, end: 20090901
  2. MIRENA [Suspect]
     Dosage: CONTINUOUS
     Route: 015
     Dates: start: 20090917

REACTIONS (1)
  - DEVICE EXPULSION [None]
